FAERS Safety Report 8195933-7 (Version None)
Quarter: 2012Q1

REPORT INFORMATION
  Report Type: 
  Country: None (occurrence: None)
  Receive Date: 20120308
  Receipt Date: 20120224
  Transmission Date: 20120608
  Serious: Yes (Hospitalization)
  Sender: FDA-Public Use
  Company Number: NL-MYLANLABS-2012S1004561

PATIENT
  Age: 53 Year
  Sex: Female
  Weight: 98 kg

DRUGS (4)
  1. CLOZAPINE [Suspect]
     Indication: BIPOLAR DISORDER
     Dosage: 525MG PER DAY
     Route: 065
  2. FORLAX /00754501/ [Concomitant]
     Indication: IRRITABLE BOWEL SYNDROME
     Route: 065
  3. LITHIUM CARBONATE [Suspect]
     Indication: BIPOLAR DISORDER
     Dosage: 600MG PER DAY
     Route: 065
  4. LOPERAMIDE HCL [Concomitant]
     Indication: IRRITABLE BOWEL SYNDROME
     Route: 065

REACTIONS (6)
  - ADAMS-STOKES SYNDROME [None]
  - BLOOD PRESSURE INCREASED [None]
  - ORTHOSTATIC HYPOTENSION [None]
  - ATRIOVENTRICULAR BLOCK COMPLETE [None]
  - FALL [None]
  - PALPITATIONS [None]
